FAERS Safety Report 16842722 (Version 1)
Quarter: 2019Q3

REPORT INFORMATION
  Report Type: Spontaneous
  Country: FR (occurrence: FR)
  Receive Date: 20190924
  Receipt Date: 20190924
  Transmission Date: 20191005
  Serious: Yes (Hospitalization)
  Sender: FDA-Public Use
  Company Number: FR-SUN PHARMACEUTICAL INDUSTRIES LTD-2019RR-221487

PATIENT
  Age: 60 Year
  Sex: Male

DRUGS (6)
  1. PERINDOPRIL [Suspect]
     Active Substance: PERINDOPRIL
     Indication: TOXICITY TO VARIOUS AGENTS
     Dosage: 45 DOSAGE FORM, UNK
     Route: 048
     Dates: start: 20190824
  2. OMEPRAZOLE. [Suspect]
     Active Substance: OMEPRAZOLE
     Indication: TOXICITY TO VARIOUS AGENTS
     Dosage: 14 DOSAGE FORM, UNK
     Route: 048
     Dates: start: 20190824
  3. TOPALGIC [TRAMADOL HYDROCHLORIDE] [Suspect]
     Active Substance: TRAMADOL HYDROCHLORIDE
     Indication: TOXICITY TO VARIOUS AGENTS
     Dosage: 30 DOSAGE FORM, UNK
     Route: 048
     Dates: start: 20190824
  4. ZOPICLONE [Suspect]
     Active Substance: ZOPICLONE
     Indication: TOXICITY TO VARIOUS AGENTS
     Dosage: 40 DOSAGE FORM, UNK
     Route: 048
     Dates: start: 20190824
  5. KIVEXA [Suspect]
     Active Substance: ABACAVIR SULFATE\LAMIVUDINE
     Indication: TOXICITY TO VARIOUS AGENTS
     Dosage: 10 DOSAGE FORM, UNK
     Route: 048
     Dates: start: 20190824
  6. VIRAMUNE [Suspect]
     Active Substance: NEVIRAPINE
     Indication: TOXICITY TO VARIOUS AGENTS
     Dosage: 10 DOSAGE FORM, UNK
     Route: 048
     Dates: start: 20190824

REACTIONS (1)
  - Acute kidney injury [Recovering/Resolving]

NARRATIVE: CASE EVENT DATE: 20190824
